FAERS Safety Report 8255690-2 (Version None)
Quarter: 2012Q2

REPORT INFORMATION
  Report Type: 
  Country: None (occurrence: None)
  Receive Date: 20120403
  Receipt Date: 20120403
  Transmission Date: 20120825
  Serious: Yes (Other)
  Sender: FDA-Public Use
  Company Number: None

PATIENT
  Sex: Male
  Weight: 168 kg

DRUGS (1)
  1. LEVAQUIN [Suspect]

REACTIONS (5)
  - SKIN WARM [None]
  - RASH [None]
  - PRURITUS [None]
  - SKIN LESION [None]
  - LIP OEDEMA [None]
